FAERS Safety Report 13724690 (Version 1)
Quarter: 2017Q3

REPORT INFORMATION
  Report Type: Report from Study
  Country: JP (occurrence: JP)
  Receive Date: 20170706
  Receipt Date: 20170706
  Transmission Date: 20171127
  Serious: Yes (Death, Life-Threatening, Hospitalization)
  Sender: FDA-Public Use
  Company Number: JP-PFIZER INC-2015318905

PATIENT
  Age: 43 Year
  Sex: Male
  Weight: 63 kg

DRUGS (28)
  1. RABEPRAZOLE SODIUM. [Concomitant]
     Active Substance: RABEPRAZOLE SODIUM
     Indication: CHRONIC GASTRITIS
     Dosage: 10 MG, 1X/DAY
     Route: 048
     Dates: start: 20150129
  2. LAFUTIDINE [Concomitant]
     Active Substance: LAFUTIDINE
     Indication: CHRONIC GASTRITIS
     Dosage: 10 MG, 2X/DAY
     Route: 048
     Dates: start: 20150129, end: 20150731
  3. ISOPROPYLANTIPYRINE [Concomitant]
     Active Substance: PROPYPHENAZONE
     Indication: HEADACHE
     Dosage: 150 MG, AS NEEDED
     Route: 048
     Dates: start: 20150514
  4. POLAPREZINC [Concomitant]
     Active Substance: POLAPREZINC
     Indication: CHRONIC GASTRITIS
     Dosage: 75 MG, 2X/DAY
     Route: 048
     Dates: start: 20150630
  5. PHYSIO D [Concomitant]
     Indication: SUBILEUS
     Dosage: 500 ML, 1X/DAY
     Route: 042
     Dates: start: 20150730, end: 20150803
  6. DOCETAXEL. [Suspect]
     Active Substance: DOCETAXEL
     Dosage: UNK
  7. BEVACIZUMAB. [Concomitant]
     Active Substance: BEVACIZUMAB
     Indication: CHEMOTHERAPY
     Dosage: 980 MG, EVERY 3 WEEKS
     Route: 042
     Dates: start: 20150129, end: 20150625
  8. CEFCAPENE PIVOXIL HYDROCHLORIDE [Concomitant]
     Active Substance: CEFCAPENE PIVOXIL HYDROCHLORIDE
     Indication: INFECTION PROPHYLAXIS
     Dosage: 100 MG, 3X/DAY
     Route: 048
     Dates: start: 20150630, end: 20150703
  9. DOCETAXEL. [Suspect]
     Active Substance: DOCETAXEL
     Indication: NON-SMALL CELL LUNG CANCER
     Dosage: 130 MG, CYCLIC (ONCE EVERY 2 WEEKS)
     Route: 042
     Dates: start: 20150728, end: 20150728
  10. LACTEC D /00895301/ [Concomitant]
     Indication: SUBILEUS
     Dosage: 500 ML, 2X/DAY
     Route: 042
     Dates: start: 20150803, end: 20150803
  11. CLOBETASOL PROPIONATE. [Concomitant]
     Active Substance: CLOBETASOL PROPIONATE
     Indication: VASCULITIS
     Dosage: PROPER DOSE, 1X/DAY
     Route: 061
     Dates: start: 20150806
  12. ALLYLISOPROPYLACETYLUREA [Concomitant]
     Active Substance: APRONALIDE
     Dosage: 60 MG, AS NEEDED
     Route: 048
     Dates: start: 20150514
  13. OXYCODONE HYDROCHLORIDE. [Concomitant]
     Active Substance: OXYCODONE HYDROCHLORIDE
     Dosage: 5 MG, UNK
     Route: 048
     Dates: start: 20150727
  14. LOXOPROFEN SODIUM [Concomitant]
     Active Substance: LOXOPROFEN SODIUM
     Indication: CANCER PAIN
     Dosage: 60 MG, 3X/DAY
     Route: 048
     Dates: start: 20150116
  15. MAGNESIUM OXIDE. [Concomitant]
     Active Substance: MAGNESIUM OXIDE
     Indication: CONSTIPATION
     Dosage: 330 MG, UNK
     Route: 048
     Dates: start: 20150123
  16. ACETAMINOPHEN. [Concomitant]
     Active Substance: ACETAMINOPHEN
     Indication: HEADACHE
     Dosage: 25 MG, UNK
     Route: 048
     Dates: start: 20150514
  17. ANHYDROUS CAFFEINE [Concomitant]
     Active Substance: CAFFEINE
     Indication: HEADACHE
     Dosage: 50 MG, UNK
     Route: 048
     Dates: start: 20150514
  18. DOCETAXEL. [Suspect]
     Active Substance: DOCETAXEL
     Dosage: UNK
  19. DOCETAXEL. [Suspect]
     Active Substance: DOCETAXEL
     Dosage: UNK
  20. OXYCODONE HYDROCHLORIDE. [Concomitant]
     Active Substance: OXYCODONE HYDROCHLORIDE
     Dosage: 10 MG, 2X/DAY
     Route: 048
     Dates: start: 20150727, end: 20150815
  21. METOCLOPRAMIDE. [Concomitant]
     Active Substance: METOCLOPRAMIDE
     Indication: PROPHYLAXIS OF NAUSEA AND VOMITING
     Dosage: 5 MG, 3X/DAY
     Route: 048
     Dates: start: 20150625
  22. LACTEC D /00895301/ [Concomitant]
     Dosage: 1000 ML, 1X/DAY
     Route: 042
     Dates: start: 20150731, end: 20150802
  23. DOCETAXEL. [Suspect]
     Active Substance: DOCETAXEL
     Dosage: UNK
  24. LACTEC D /00895301/ [Concomitant]
     Indication: DIARRHOEA
     Dosage: 500 ML, 1X/DAY
     Route: 042
     Dates: start: 20150730, end: 20150730
  25. ACETAMINOPHEN. [Concomitant]
     Active Substance: ACETAMINOPHEN
     Dosage: 25 MG, UNK
     Route: 048
     Dates: start: 20150514
  26. OXYCODONE HYDROCHLORIDE. [Concomitant]
     Active Substance: OXYCODONE HYDROCHLORIDE
     Indication: CANCER PAIN
     Dosage: 2.5 MG, UNK
     Route: 048
     Dates: start: 20150123
  27. OXYCODONE HYDROCHLORIDE. [Concomitant]
     Active Substance: OXYCODONE HYDROCHLORIDE
     Dosage: 5 MG, 2X/DAY
     Route: 048
     Dates: start: 20150203, end: 20150726
  28. CAFFEINE. [Concomitant]
     Active Substance: CAFFEINE
     Indication: HEADACHE
     Dosage: 1 G, DAILY
     Route: 048
     Dates: start: 20150514

REACTIONS (4)
  - Neoplasm progression [Fatal]
  - Peritonitis [Recovered/Resolved]
  - Ileus paralytic [Recovered/Resolved]
  - Intestinal perforation [Not Recovered/Not Resolved]

NARRATIVE: CASE EVENT DATE: 20150816
